FAERS Safety Report 25606350 (Version 1)
Quarter: 2025Q3

REPORT INFORMATION
  Report Type: Spontaneous
  Country: US (occurrence: US)
  Receive Date: 20250725
  Receipt Date: 20250725
  Transmission Date: 20251020
  Serious: No
  Sender: MYLAN
  Company Number: US-MYLANLABS-2025M1057491

PATIENT
  Sex: Female

DRUGS (2)
  1. PREGABALIN [Suspect]
     Active Substance: PREGABALIN
     Indication: Pain
  2. PREGABALIN [Suspect]
     Active Substance: PREGABALIN
     Indication: Anxiety

REACTIONS (4)
  - Irritability [Unknown]
  - Depression [Unknown]
  - Agitation [Unknown]
  - Product substitution issue [Unknown]
